FAERS Safety Report 20559665 (Version 1)
Quarter: 2022Q1

REPORT INFORMATION
  Report Type: Spontaneous
  Country: US (occurrence: None)
  Receive Date: 20220304
  Receipt Date: 20220304
  Transmission Date: 20220423
  Serious: Yes (Hospitalization)
  Sender: FDA-Public Use
  Company Number: None

PATIENT
  Age: 48 Year
  Sex: Male

DRUGS (1)
  1. HUMIRA [Suspect]
     Active Substance: ADALIMUMAB
     Route: 058
     Dates: start: 20210812, end: 20210929

REACTIONS (7)
  - Myocardial infarction [None]
  - Hypersensitivity [None]
  - Lip swelling [None]
  - Swelling face [None]
  - Peripheral swelling [None]
  - Peripheral swelling [None]
  - Diabetes mellitus [None]

NARRATIVE: CASE EVENT DATE: 20210903
